FAERS Safety Report 9519716 (Version 1)
Quarter: 2013Q1

REPORT INFORMATION
  Report Type: Spontaneous
  Country: US (occurrence: None)
  Receive Date: 20130305
  Receipt Date: 20130305
  Transmission Date: 20140127
  Serious: Yes (Hospitalization)
  Sender: FDA-Public Use
  Company Number: 163-21880-12010927

PATIENT
  Age: 63 Year
  Sex: Male
  Weight: 107.5 kg

DRUGS (6)
  1. REVLIMID (LENALIDOMIDE) (25 MILLIGRAM, CAPSULES) [Suspect]
     Indication: PLASMA CELL MYELOMA
     Dosage: 25 MG, DAILY X 21 DAYS, PO
     Route: 048
     Dates: start: 20111208, end: 20111229
  2. DEXAMETHASONE (DEXAMETHASONE) (TABLETS) [Concomitant]
  3. EPOETIN (EPOETIN ALFA) (INJECTION) [Concomitant]
  4. GABAPENTIN (GABAPENTIN) (TABLETS) [Concomitant]
  5. LORATIDINE (LORATADINE) (TABLETS) [Concomitant]
  6. WARFARIN (WARFARIN) (TABLETS) [Concomitant]

REACTIONS (2)
  - Pneumonia [None]
  - Pyrexia [None]
